FAERS Safety Report 6385733-2 (Version None)
Quarter: 2009Q4

REPORT INFORMATION
  Report Type: 
  Country: None (occurrence: None)
  Receive Date: 20091002
  Receipt Date: 20081007
  Transmission Date: 20100525
  Serious: No
  Sender: FDA-Public Use
  Company Number: US-ASTRAZENECA-2008UW21830

PATIENT
  Age: 71 Year
  Sex: Female

DRUGS (5)
  1. ARIMIDEX [Suspect]
     Indication: BREAST CANCER STAGE I
     Route: 048
     Dates: start: 20051201
  2. ARIMIDEX [Suspect]
     Route: 048
     Dates: start: 20081007, end: 20081007
  3. PREDNISONE TAB [Concomitant]
  4. TRAZODONE HCL [Concomitant]
  5. VITAMINS [Concomitant]

REACTIONS (3)
  - ACCIDENTAL OVERDOSE [None]
  - HOT FLUSH [None]
  - NAUSEA [None]
